FAERS Safety Report 16915624 (Version 1)
Quarter: 2019Q4

REPORT INFORMATION
  Report Type: Spontaneous
  Country: US (occurrence: US)
  Receive Date: 20191013
  Receipt Date: 20191013
  Transmission Date: 20200122
  Serious: Yes (Other)
  Sender: FDA-Public Use
  Company Number: None

PATIENT
  Age: 58 Year
  Sex: Female
  Weight: 56.25 kg

DRUGS (1)
  1. CEPHALEXIN. [Suspect]
     Active Substance: CEPHALEXIN
     Indication: TOOTH INFECTION
     Route: 048
     Dates: start: 20191010, end: 20191013

REACTIONS (2)
  - Nail bed disorder [None]
  - Drug hypersensitivity [None]

NARRATIVE: CASE EVENT DATE: 20191013
